FAERS Safety Report 4889346-0 (Version None)
Quarter: 2006Q1

REPORT INFORMATION
  Report Type: 
  Country: None (occurrence: None)
  Receive Date: 20060120
  Receipt Date: 20060117
  Transmission Date: 20060701
  Serious: Yes (Hospitalization)
  Sender: FDA-Public Use
  Company Number: A001-319-608

PATIENT
  Age: 61 Year
  Sex: Female
  Weight: 58 kg

DRUGS (22)
  1. DONEPEZIL HCL [Suspect]
     Indication: VASCULAR DEMENTIA
     Dosage: 5 MG, 1 IN 1 D; ORAL, 5 MG, 1 IN 1 D, ORAL, 5 MG, 1 IN 1 D, ORAL
     Route: 048
     Dates: start: 20040309, end: 20040313
  2. DONEPEZIL HCL [Suspect]
     Indication: VASCULAR DEMENTIA
     Dosage: 5 MG, 1 IN 1 D; ORAL, 5 MG, 1 IN 1 D, ORAL, 5 MG, 1 IN 1 D, ORAL
     Route: 048
     Dates: start: 20040316, end: 20040611
  3. DONEPEZIL HCL [Suspect]
     Indication: VASCULAR DEMENTIA
     Dosage: 5 MG, 1 IN 1 D; ORAL, 5 MG, 1 IN 1 D, ORAL, 5 MG, 1 IN 1 D, ORAL
     Route: 048
     Dates: start: 20040618, end: 20040830
  4. PHENYTOIN [Concomitant]
  5. CLOPIDOGREL [Concomitant]
  6. CALCIUM GLUCONATE [Concomitant]
  7. ATORVASTATIN CALCIUM [Concomitant]
  8. TIZANIDINE HCL [Concomitant]
  9. RALOXIFENE [Concomitant]
  10. DIPHENHYDRAMINE [Concomitant]
  11. NADOLOL [Concomitant]
  12. DESLORATADINE [Concomitant]
  13. BUDESONIDE [Concomitant]
  14. METOCLOPRAMIDE [Concomitant]
  15. LORAZEPAM [Concomitant]
  16. CLONAZEPAM [Concomitant]
  17. FAMOTIDINE [Concomitant]
  18. LEVETIRACETAM [Concomitant]
  19. DOCUSATE CALCIUM [Concomitant]
  20. ENOXAPARIN SODIUM [Concomitant]
  21. DARVOCET-N (PROPACET) [Concomitant]
  22. ESCITALOPRAM (CITALOPRAM) [Concomitant]

REACTIONS (3)
  - CONVULSION [None]
  - DYSKINESIA [None]
  - HEMIPARESIS [None]
